FAERS Safety Report 7339428-9 (Version None)
Quarter: 2011Q1

REPORT INFORMATION
  Report Type: 
  Country: None (occurrence: None)
  Receive Date: 20110308
  Receipt Date: 20110302
  Transmission Date: 20110831
  Serious: No
  Sender: FDA-Public Use
  Company Number: US-B.I. PHARMACEUTICALS,INC./RIDGEFIELD-2011-BP-01354BP

PATIENT
  Age: 74 Year
  Sex: Female

DRUGS (13)
  1. KLOR-CON [Concomitant]
     Indication: BLOOD POTASSIUM DECREASED
     Dosage: 20 MG
     Route: 048
     Dates: start: 20100101
  2. PRAVASTATIN [Concomitant]
     Indication: HYPERTENSION
     Route: 048
     Dates: start: 20100601
  3. PREVACID [Concomitant]
     Indication: PROPHYLAXIS
     Dates: start: 20100601
  4. ASA [Concomitant]
     Dosage: 81 MG
     Route: 048
     Dates: start: 20100601
  5. LISINOPRIL [Concomitant]
     Indication: HYPERTENSION
     Dosage: 10 MG
     Dates: start: 20100101
  6. TEMAZEPAM [Concomitant]
     Indication: SLEEP DISORDER
     Dosage: 30 MG
     Route: 048
     Dates: start: 20070101
  7. PERCOCET [Concomitant]
     Indication: SPINAL DISORDER
     Route: 048
     Dates: start: 20070101
  8. VERAPAMIL [Concomitant]
     Indication: HYPERTENSION
     Route: 048
     Dates: start: 20050101
  9. GABAPENTIN [Concomitant]
     Indication: NEUROPATHY PERIPHERAL
     Route: 048
     Dates: start: 20070101
  10. FLECAINIDE ACETATE [Concomitant]
     Indication: CARDIAC DISORDER
     Dates: start: 20100601
  11. ALLEGRA [Concomitant]
     Indication: HYPERSENSITIVITY
     Route: 048
  12. HYDRALAZINE [Concomitant]
     Indication: HYPERTENSION
     Dosage: 150 MG
     Dates: start: 20100601
  13. PRADAXA [Suspect]
     Indication: ATRIAL FIBRILLATION
     Dosage: 300 MG
     Route: 048
     Dates: start: 20101221

REACTIONS (6)
  - RASH PRURITIC [None]
  - SINUS CONGESTION [None]
  - RASH ERYTHEMATOUS [None]
  - EPISTAXIS [None]
  - DIZZINESS [None]
  - PRURITUS [None]
